FAERS Safety Report 9618987 (Version 3)
Quarter: 2013Q4

REPORT INFORMATION
  Report Type: Spontaneous
  Country: US (occurrence: US)
  Receive Date: 20131014
  Receipt Date: 20131106
  Transmission Date: 20140711
  Serious: No
  Sender: FDA-Public Use
  Company Number: US-009507513-1310USA004531

PATIENT
  Age: 26 Year
  Sex: Female

DRUGS (2)
  1. SAPHRIS [Suspect]
     Indication: BIPOLAR DISORDER
     Dosage: 20 MG ONCE DAILY AT NIGHT
     Route: 060
     Dates: start: 201210
  2. DEPAKOTE [Concomitant]

REACTIONS (2)
  - Breast discharge [Recovered/Resolved]
  - Inappropriate schedule of drug administration [Unknown]
